FAERS Safety Report 7719320-8 (Version None)
Quarter: 2011Q3

REPORT INFORMATION
  Report Type: 
  Country: None (occurrence: None)
  Receive Date: 20110830
  Receipt Date: 20110829
  Transmission Date: 20111222
  Serious: Yes (Other)
  Sender: FDA-Public Use
  Company Number: PL-BAYER-2011-066508

PATIENT
  Age: 70 Year
  Sex: Female

DRUGS (5)
  1. STATIN [Concomitant]
  2. ULTRAVIST 150 [Suspect]
     Indication: ARTERIOGRAM CORONARY
  3. ASPIRIN [Concomitant]
  4. PIRACETAM [Concomitant]
  5. BLOOD PRESSURE MEDICATION (NOS) [Concomitant]

REACTIONS (3)
  - HEMIPARESIS [None]
  - BINOCULAR EYE MOVEMENT DISORDER [None]
  - HYPOAESTHESIA [None]
